FAERS Safety Report 6795012-7 (Version None)
Quarter: 2010Q2

REPORT INFORMATION
  Report Type: 
  Country: None (occurrence: None)
  Receive Date: 20100624
  Receipt Date: 20100624
  Transmission Date: 20101027
  Serious: Yes (Hospitalization)
  Sender: FDA-Public Use
  Company Number: None

PATIENT
  Sex: Male
  Weight: 69.8539 kg

DRUGS (2)
  1. CETUXIMAB [Suspect]
     Indication: BLADDER CANCER
     Dosage: 250 MG/M2 WEEKLY
     Dates: start: 20091125, end: 20100428
  2. PACLITAXEL [Suspect]
     Indication: BLADDER CANCER
     Dosage: 80 MG/M2 WEEKLY
     Dates: start: 20091125, end: 20100428

REACTIONS (8)
  - ANAEMIA [None]
  - BLOOD PRESSURE INCREASED [None]
  - DEHYDRATION [None]
  - DISEASE PROGRESSION [None]
  - DYSKINESIA [None]
  - FALL [None]
  - HYPOTENSION [None]
  - QUALITY OF LIFE DECREASED [None]
